FAERS Safety Report 22630875 (Version 1)
Quarter: 2023Q2

REPORT INFORMATION
  Report Type: Spontaneous
  Country: US (occurrence: US)
  Receive Date: 20230622
  Receipt Date: 20230622
  Transmission Date: 20230722
  Serious: No
  Sender: FDA-Public Use
  Company Number: US-BIOMARINAP-US-2023-151015

PATIENT

DRUGS (1)
  1. VOXZOGO [Suspect]
     Active Substance: VOSORITIDE
     Indication: Osteochondrodysplasia
     Dosage: 0.32 MILLIGRAM, QD
     Route: 058
     Dates: start: 202305

REACTIONS (2)
  - Injection site erythema [Unknown]
  - Injection site swelling [Unknown]
